FAERS Safety Report 7210484-1 (Version None)
Quarter: 2010Q4

REPORT INFORMATION
  Report Type: 
  Country: None (occurrence: None)
  Receive Date: 20101126
  Receipt Date: 20100928
  Transmission Date: 20110411
  Serious: No
  Sender: FDA-Public Use
  Company Number: 315865

PATIENT
  Age: 58 Year
  Sex: Male
  Weight: 111.1 kg

DRUGS (4)
  1. VICTOZA [Suspect]
     Indication: TYPE 2 DIABETES MELLITUS
     Dates: start: 20100601, end: 20100701
  2. ALLOPURINOL [Concomitant]
  3. COREG [Concomitant]
  4. CARVEDILOL [Concomitant]

REACTIONS (1)
  - INJECTION SITE PAIN [None]
